FAERS Safety Report 5888714-8 (Version None)
Quarter: 2008Q3

REPORT INFORMATION
  Report Type: 
  Country: None (occurrence: None)
  Receive Date: 20080917
  Receipt Date: 20080905
  Transmission Date: 20090109
  Serious: Yes (Death)
  Sender: FDA-Public Use
  Company Number: 2008US002321

PATIENT
  Age: 40 Year
  Sex: Female

DRUGS (6)
  1. PROGRAF [Suspect]
     Indication: RENAL TRANSPLANT
     Dosage: 7 MG, UID/QD, ORAL
     Route: 048
  2. PREDNISONE [Concomitant]
  3. MYCOPHENOLATE MOFETIL [Concomitant]
  4. TRIMETOPRIN SULFA (SULFAMETHOXAZOLE, TRIMETHOPRIM) [Concomitant]
  5. AMLODIPINE [Concomitant]
  6. CLONIDINE (CLONIDINE HYDROCHLORIDE) [Concomitant]

REACTIONS (1)
  - RENAL FAILURE [None]
